FAERS Safety Report 9943224 (Version 1)
Quarter: 2014Q1

REPORT INFORMATION
  Report Type: Spontaneous
  Country: FR (occurrence: FR)
  Receive Date: 20140303
  Receipt Date: 20140303
  Transmission Date: 20141002
  Serious: Yes (Life-Threatening, Hospitalization)
  Sender: FDA-Public Use
  Company Number: FR-GLAXOSMITHKLINE-B0971818A

PATIENT
  Age: 91 Year
  Sex: Male

DRUGS (3)
  1. CLAMOXYL [Suspect]
     Indication: HERPES SIMPLEX MENINGOENCEPHALITIS
     Dosage: 12G PER DAY
     Route: 065
     Dates: start: 20140110, end: 20140116
  2. ACICLOVIR [Suspect]
     Indication: HERPES SIMPLEX MENINGOENCEPHALITIS
     Dosage: 750MG THREE TIMES PER DAY
     Route: 042
     Dates: start: 20140110, end: 20140116
  3. CEFTRIAXONE [Suspect]
     Indication: HERPES SIMPLEX MENINGOENCEPHALITIS
     Dosage: 2G PER DAY
     Route: 065
     Dates: start: 20140110, end: 20140116

REACTIONS (2)
  - Renal failure acute [Recovered/Resolved]
  - Drug interaction [Unknown]
